FAERS Safety Report 4802769-0 (Version None)
Quarter: 2005Q4

REPORT INFORMATION
  Report Type: 
  Country: None (occurrence: None)
  Receive Date: 20051013
  Receipt Date: 20050928
  Transmission Date: 20060501
  Serious: Yes (Life-Threatening, Hospitalization, Other)
  Sender: FDA-Public Use
  Company Number: USA0509109434

PATIENT
  Age: 14 Year
  Sex: Male

DRUGS (5)
  1. PROZAC [Suspect]
     Indication: ABNORMAL BEHAVIOUR
     Dosage: 20 MG DAY
     Dates: start: 19990101
  2. ABILIFY [Concomitant]
  3. LAMICTAL [Concomitant]
  4. TRILEPTAL [Concomitant]
  5. CLONIDINE [Concomitant]

REACTIONS (2)
  - PNEUMONIA ASPIRATION [None]
  - VOMITING [None]
